FAERS Safety Report 16761112 (Version 1)
Quarter: 2019Q3

REPORT INFORMATION
  Report Type: Spontaneous
  Country: US (occurrence: US)
  Receive Date: 20190830
  Receipt Date: 20190830
  Transmission Date: 20191005
  Serious: No
  Sender: FDA-Public Use
  Company Number: US-ANIPHARMA-2018-US-020349

PATIENT
  Age: 14 Year
  Sex: Male

DRUGS (2)
  1. GROWTH HORMONE (UNSPECIFIED) [Concomitant]
  2. ARIMIDEX [Suspect]
     Active Substance: ANASTROZOLE
     Indication: BODY HEIGHT BELOW NORMAL
     Dosage: 1MG DAILY
     Route: 048
     Dates: start: 201709, end: 20180928

REACTIONS (2)
  - Alopecia [Not Recovered/Not Resolved]
  - Off label use [Recovered/Resolved]

NARRATIVE: CASE EVENT DATE: 201709
